FAERS Safety Report 17802288 (Version 1)
Quarter: 2020Q2

REPORT INFORMATION
  Report Type: Spontaneous
  Country: US (occurrence: US)
  Receive Date: 20200518
  Receipt Date: 20200518
  Transmission Date: 20200714
  Serious: Yes (Disabling, Other)
  Sender: FDA-Public Use
  Company Number: None

PATIENT
  Age: 41 Year
  Sex: Female
  Weight: 59.4 kg

DRUGS (6)
  1. VITAMIN B12 [Concomitant]
     Active Substance: CYANOCOBALAMIN
  2. LUMIFY [Suspect]
     Active Substance: BRIMONIDINE TARTRATE
     Indication: OCULAR HYPERAEMIA
     Dosage: ?          QUANTITY:1 DROP(S);?
     Route: 047
  3. VITAMIN D [Concomitant]
     Active Substance: VITAMIN D NOS
  4. DAILY MULTIVITAMIN [Concomitant]
     Active Substance: VITAMINS
  5. WELLBUTRIN SYNTHESIS [Concomitant]
  6. BIOTIN [Concomitant]
     Active Substance: BIOTIN

REACTIONS (5)
  - Eye irritation [None]
  - Vision blurred [None]
  - Visual impairment [None]
  - Eye swelling [None]
  - Pupillary disorder [None]

NARRATIVE: CASE EVENT DATE: 20200518
